FAERS Safety Report 4666242-5 (Version None)
Quarter: 2005Q2

REPORT INFORMATION
  Report Type: 
  Country: None (occurrence: None)
  Receive Date: 20050518
  Receipt Date: 20050509
  Transmission Date: 20051028
  Serious: Yes (Death, Disabling, Other)
  Sender: FDA-Public Use
  Company Number: 2005-04-1062

PATIENT
  Age: 45 Year
  Sex: Male

DRUGS (7)
  1. INTRON A [Suspect]
     Indication: MALIGNANT MELANOMA
     Dosage: SEE IMAGE
     Dates: start: 19990926, end: 19990101
  2. INTRON A [Suspect]
     Indication: MALIGNANT MELANOMA
     Dosage: SEE IMAGE
     Dates: start: 19990926, end: 20000224
  3. INTRON A [Suspect]
     Indication: MALIGNANT MELANOMA
     Dosage: SEE IMAGE
     Dates: start: 19991001, end: 20000224
  4. INTRON A [Suspect]
     Indication: MALIGNANT MELANOMA
     Dosage: SEE IMAGE
     Dates: start: 19990101
  5. RADIATION THERAPY [Suspect]
     Indication: MALIGNANT MELANOMA
     Dosage: SEE IMAGE
     Dates: start: 19990801, end: 19990801
  6. RADIATION THERAPY [Suspect]
     Indication: MALIGNANT MELANOMA
     Dosage: SEE IMAGE
     Dates: start: 19990801, end: 19990901
  7. RADIATION THERAPY [Suspect]
     Indication: MALIGNANT MELANOMA
     Dosage: SEE IMAGE
     Dates: start: 19990906, end: 19990901

REACTIONS (23)
  - ARTERIOVENOUS FISTULA [None]
  - BONE MARROW TUMOUR CELL INFILTRATION [None]
  - CERVICAL MYELOPATHY [None]
  - DIPLOPIA [None]
  - DRUG TOXICITY [None]
  - DYSPHAGIA [None]
  - EXOPHTHALMOS [None]
  - EYELID PTOSIS [None]
  - HYPERCALCAEMIA [None]
  - LIVER DISORDER [None]
  - LYMPHADENOPATHY [None]
  - MALIGNANT MELANOMA [None]
  - MALIGNANT NEOPLASM PROGRESSION [None]
  - METASTASES TO BONE [None]
  - METASTATIC NEOPLASM [None]
  - MYELITIS [None]
  - OCULAR HYPERAEMIA [None]
  - PAIN [None]
  - PARAESTHESIA [None]
  - RADIATION INJURY [None]
  - SINUS DISORDER [None]
  - THERAPY NON-RESPONDER [None]
  - THROMBOCYTOPENIA [None]
